FAERS Safety Report 5644402-4 (Version None)
Quarter: 2008Q1

REPORT INFORMATION
  Report Type: 
  Country: None (occurrence: None)
  Receive Date: 20080229
  Receipt Date: 20080219
  Transmission Date: 20080703
  Serious: Yes (Other)
  Sender: FDA-Public Use
  Company Number: FI-AMGEN-US267164

PATIENT
  Age: 37 Year
  Sex: Female

DRUGS (3)
  1. ENBREL [Suspect]
     Indication: SACROILIITIS
     Route: 058
  2. SULFASALAZINE [Concomitant]
     Indication: SACROILIITIS
     Route: 065
  3. METHOTREXATE [Concomitant]
     Indication: SACROILIITIS
     Route: 065

REACTIONS (1)
  - LEUKOPENIA [None]
